FAERS Safety Report 15665084 (Version 1)
Quarter: 2018Q4

REPORT INFORMATION
  Report Type: Spontaneous
  Country: US (occurrence: US)
  Receive Date: 20181128
  Receipt Date: 20181128
  Transmission Date: 20190205
  Serious: Yes (Other)
  Sender: FDA-Public Use
  Company Number: US-GLAXOSMITHKLINE-US2018210681

PATIENT
  Age: 49 Year

DRUGS (1)
  1. SENSODYNE RAPID RELIEF [Suspect]
     Active Substance: STANNOUS FLUORIDE
     Indication: SENSITIVITY OF TEETH
     Dosage: UNK
     Dates: start: 20181024, end: 20181112

REACTIONS (11)
  - Malaise [Unknown]
  - Noninfective gingivitis [Unknown]
  - Mouth ulceration [Unknown]
  - Pharyngeal ulceration [Unknown]
  - Tongue ulceration [Unknown]
  - Toothache [Unknown]
  - Corrosive oropharyngeal injury [Unknown]
  - Oral pain [Unknown]
  - Glossodynia [Unknown]
  - Gingival pain [Unknown]
  - Oropharyngeal pain [Unknown]

NARRATIVE: CASE EVENT DATE: 20181029
